FAERS Safety Report 14763368 (Version 1)
Quarter: 2018Q2

REPORT INFORMATION
  Report Type: Spontaneous
  Country: US (occurrence: US)
  Receive Date: 20180416
  Receipt Date: 20180416
  Transmission Date: 20180711
  Serious: No
  Sender: FDA-Public Use
  Company Number: US-TEVA-2018-US-859829

PATIENT
  Sex: Female

DRUGS (1)
  1. COPAXONE [Suspect]
     Active Substance: GLATIRAMER ACETATE
     Dosage: FORM STRENGTH: UNKNOWN, DAILY
     Route: 065

REACTIONS (8)
  - Injection site pain [Unknown]
  - Feeling abnormal [Unknown]
  - Injection site mass [Unknown]
  - Fear [Unknown]
  - Tremor [Unknown]
  - Feeling hot [Unknown]
  - Hyperhidrosis [Unknown]
  - Injection site swelling [Unknown]
